FAERS Safety Report 9207987 (Version 1)
Quarter: 2013Q2

REPORT INFORMATION
  Report Type: Spontaneous
  Country: US (occurrence: US)
  Receive Date: 20130403
  Receipt Date: 20130403
  Transmission Date: 20140414
  Serious: No
  Sender: FDA-Public Use
  Company Number: US-ASTRAZENECA-2013SE15723

PATIENT
  Age: 82 Year
  Sex: Female
  Weight: 68 kg

DRUGS (7)
  1. BRILINTA [Suspect]
     Indication: THROMBOSIS PROPHYLAXIS
     Route: 048
     Dates: start: 201212
  2. BRILINTA [Suspect]
     Indication: STENT PLACEMENT
     Route: 048
     Dates: start: 201212
  3. ASPIRIN [Suspect]
     Dates: start: 201212
  4. MICARDIS [Concomitant]
  5. SYNTHROID [Concomitant]
  6. SIMVASTATIN [Concomitant]
  7. VESICARE [Concomitant]

REACTIONS (3)
  - Alopecia [Not Recovered/Not Resolved]
  - Weight loss poor [Unknown]
  - Heart valve incompetence [Unknown]
